FAERS Safety Report 9931928 (Version 2)
Quarter: 2014Q1

REPORT INFORMATION
  Report Type: Spontaneous
  Country: JP (occurrence: JP)
  Receive Date: 20140228
  Receipt Date: 20140311
  Transmission Date: 20141002
  Serious: Yes (Death)
  Sender: FDA-Public Use
  Company Number: JP-JNJFOC-20140217412

PATIENT
  Age: 75 Year
  Sex: Female

DRUGS (3)
  1. SOVRIAD [Suspect]
     Indication: CHRONIC HEPATITIS C
     Route: 048
  2. REBETOL [Concomitant]
     Indication: CHRONIC HEPATITIS C
     Route: 048
  3. PEGINTRON [Concomitant]
     Indication: CHRONIC HEPATITIS C
     Route: 058

REACTIONS (1)
  - Meningitis bacterial [Fatal]
